FAERS Safety Report 12573831 (Version 1)
Quarter: 2016Q3

REPORT INFORMATION
  Report Type: Spontaneous
  Country: US (occurrence: US)
  Receive Date: 20160720
  Receipt Date: 20160720
  Transmission Date: 20161109
  Serious: Yes (Other)
  Sender: FDA-Public Use
  Company Number: US-ASTRAZENECA-2016SE76336

PATIENT
  Age: 57 Year
  Sex: Female
  Weight: 81.6 kg

DRUGS (7)
  1. BYETTA [Suspect]
     Active Substance: EXENATIDE
     Indication: TYPE 2 DIABETES MELLITUS
     Dosage: 10.0UG UNKNOWN
     Route: 058
     Dates: start: 2004, end: 2007
  2. SYNTHROID [Concomitant]
     Active Substance: LEVOTHYROXINE SODIUM
     Indication: THYROID DISORDER
     Dosage: 112.0UG/ML UNKNOWN
     Route: 048
  3. LANTUS [Concomitant]
     Active Substance: INSULIN GLARGINE
     Indication: TYPE 2 DIABETES MELLITUS
     Route: 058
  4. ASPIRIN. [Concomitant]
     Active Substance: ASPIRIN
     Indication: CARDIAC DISORDER
     Route: 048
  5. METFORMIN [Concomitant]
     Active Substance: METFORMIN HYDROCHLORIDE
     Indication: TYPE 2 DIABETES MELLITUS
     Route: 048
  6. LIPITOR [Concomitant]
     Active Substance: ATORVASTATIN CALCIUM
     Indication: BLOOD CHOLESTEROL ABNORMAL
     Route: 048
  7. TRIAMTERENE. [Concomitant]
     Active Substance: TRIAMTERENE
     Indication: DIZZINESS
     Dosage: 37.5MG UNKNOWN
     Route: 048

REACTIONS (9)
  - Breast cancer [Recovered/Resolved]
  - Weight decreased [Unknown]
  - Nausea [Recovered/Resolved]
  - Headache [Recovered/Resolved]
  - Dizziness [Not Recovered/Not Resolved]
  - Nasopharyngitis [Recovered/Resolved]
  - Body height decreased [Recovering/Resolving]
  - Eustachian tube disorder [Unknown]
  - Glycosylated haemoglobin decreased [Recovering/Resolving]

NARRATIVE: CASE EVENT DATE: 2007
